FAERS Safety Report 5234511-6 (Version None)
Quarter: 2007Q1

REPORT INFORMATION
  Report Type: 
  Country: None (occurrence: None)
  Receive Date: 20070209
  Receipt Date: 20070131
  Transmission Date: 20070707
  Serious: Yes (Hospitalization)
  Sender: FDA-Public Use
  Company Number: US-KINGPHARMUSA00001-K200700107

PATIENT
  Sex: Female

DRUGS (2)
  1. ALTACE [Suspect]
     Dosage: 50 MG, SINGLE
     Route: 048
     Dates: start: 20070128, end: 20070128
  2. SONATA [Suspect]
     Dosage: 7 TO 14 CAPSULES OR 35 TO 70 MG, SINGLE
     Route: 048
     Dates: start: 20070128, end: 20070128

REACTIONS (5)
  - HYPOTENSION [None]
  - INTENTIONAL OVERDOSE [None]
  - SOMNOLENCE [None]
  - SUICIDE ATTEMPT [None]
  - TACHYCARDIA [None]
